FAERS Safety Report 6121541-5 (Version None)
Quarter: 2009Q1

REPORT INFORMATION
  Report Type: 
  Country: None (occurrence: None)
  Receive Date: 20090317
  Receipt Date: 20081112
  Transmission Date: 20090719
  Serious: Yes (Hospitalization, Other)
  Sender: FDA-Public Use
  Company Number: CZ-JNJFOC-20090303022

PATIENT
  Age: 54 Year
  Sex: Male

DRUGS (4)
  1. RISPERIDONE [Suspect]
     Route: 065
  2. RISPERIDONE [Suspect]
     Indication: DEPRESSION
     Route: 065
  3. LITHIUM CARBONATE [Interacting]
     Indication: DEPRESSION
     Route: 065
  4. SERTRALINE [Interacting]
     Indication: DEPRESSION

REACTIONS (3)
  - BLOOD PROLACTIN INCREASED [None]
  - DEPRESSION [None]
  - DRUG INTERACTION [None]
